FAERS Safety Report 6982119-4 (Version None)
Quarter: 2010Q3

REPORT INFORMATION
  Report Type: 
  Country: None (occurrence: None)
  Receive Date: 20100914
  Receipt Date: 20091214
  Transmission Date: 20110219
  Serious: Yes (Other)
  Sender: FDA-Public Use
  Company Number: US-PFIZER INC-2009290638

PATIENT
  Sex: Female
  Weight: 81.179 kg

DRUGS (16)
  1. LYRICA [Suspect]
     Indication: PAIN
     Dosage: FREQUENCY: 2X/DAY,
     Dates: start: 20090901, end: 20091001
  2. GABAPENTIN [Concomitant]
     Dosage: UNK
  3. KETOROLAC [Concomitant]
     Dosage: UNK
  4. FOSAMAX [Concomitant]
     Dosage: UNK
  5. LOZOL [Concomitant]
     Dosage: UNK
  6. SPIRONOLACTONE [Concomitant]
     Dosage: UNK
  7. MONTELUKAST [Concomitant]
     Dosage: UNK
  8. ZOCOR [Concomitant]
     Dosage: UNK
  9. LEXAPRO [Concomitant]
     Indication: DEPRESSION
     Dosage: UNK
  10. LIDOCAINE [Concomitant]
     Dosage: UNK
  11. OXYCODONE [Concomitant]
     Indication: PAIN
     Dosage: 20 MG, UNK
  12. VICODIN [Concomitant]
  13. TYLENOL [Concomitant]
     Dosage: FREQUENCY: AS NEEDED,
  14. POTASSIUM [Concomitant]
     Dosage: UNK
  15. FISH OIL [Concomitant]
     Dosage: UNK
  16. VITAMIN E [Concomitant]
     Dosage: UNK

REACTIONS (1)
  - CELLULITIS [None]
